FAERS Safety Report 22118838 (Version 1)
Quarter: 2023Q1

REPORT INFORMATION
  Report Type: Report from Study
  Country: US (occurrence: None)
  Receive Date: 20230321
  Receipt Date: 20230321
  Transmission Date: 20230418
  Serious: Yes (Death)
  Sender: FDA-Public Use
  Company Number: US-ROCHE-3313517

PATIENT

DRUGS (2)
  1. ATEZOLIZUMAB [Suspect]
     Active Substance: ATEZOLIZUMAB
     Indication: Neoplasm
     Dosage: FINAL DOSE RECEIVED ON 17/DEC/2018, OVER 60 MINUTES ON DAY 1
     Route: 041
     Dates: start: 20171010
  2. BEVACIZUMAB [Suspect]
     Active Substance: BEVACIZUMAB
     Indication: Neoplasm
     Dosage: FINAL DOSE RECEIVED ON 17/DEC/2018, OVER 60 MINUTES ON DAY 1
     Route: 042
     Dates: start: 20171010

REACTIONS (1)
  - Death [Fatal]

NARRATIVE: CASE EVENT DATE: 20190315
